FAERS Safety Report 23509183 (Version 1)
Quarter: 2024Q1

REPORT INFORMATION
  Report Type: Spontaneous
  Country: US (occurrence: None)
  Receive Date: 20240209
  Receipt Date: 20240209
  Transmission Date: 20240410
  Serious: Yes (Other)
  Sender: FDA-Public Use
  Company Number: None

PATIENT
  Age: 70 Year
  Sex: Female

DRUGS (2)
  1. PULMOZYME [Suspect]
     Active Substance: DORNASE ALFA
     Indication: Cystic fibrosis
     Dosage: OTHER QUANTITY : 2.5MG/2.5ML;?FREQUENCY : DAILY;?OTHER ROUTE : VIA NEBULIZER;?INHALE 2.5 ML VIA NEBU
     Route: 050
     Dates: start: 20171017
  2. PULMOZYME [Suspect]
     Active Substance: DORNASE ALFA
     Dosage: FREQUENCY : DAILY;?OTHER ROUTE : VIA NEBULIZER;?
     Route: 050

REACTIONS (1)
  - Pelvic fracture [None]

NARRATIVE: CASE EVENT DATE: 20240205
